FAERS Safety Report 8120971-X (Version None)
Quarter: 2012Q1

REPORT INFORMATION
  Report Type: 
  Country: None (occurrence: None)
  Receive Date: 20120208
  Receipt Date: 20120126
  Transmission Date: 20120608
  Serious: Yes (Other)
  Sender: FDA-Public Use
  Company Number: ES-ELI_LILLY_AND_COMPANY-ES201201008225

PATIENT
  Sex: Female
  Weight: 69 kg

DRUGS (4)
  1. CALCIUM CARBONATE [Concomitant]
     Indication: OSTEOPOROSIS
  2. TRAMADOL HCL [Concomitant]
     Indication: PAIN
     Dosage: 1 DF, QD
     Route: 048
  3. FORTEO [Suspect]
     Indication: OSTEOPOROSIS
     Dosage: 20 UG, QD
     Route: 058
     Dates: start: 20110301
  4. TRAMADOL HCL [Concomitant]
     Indication: PAIN
     Dosage: 2 DF, QD
     Route: 048

REACTIONS (2)
  - DEVICE DISLOCATION [None]
  - FALL [None]
